FAERS Safety Report 15535758 (Version 1)
Quarter: 2018Q4

REPORT INFORMATION
  Report Type: Spontaneous
  Country: US (occurrence: US)
  Receive Date: 20181022
  Receipt Date: 20181022
  Transmission Date: 20190205
  Serious: No
  Sender: FDA-Public Use
  Company Number: US-PFIZER INC-2018424508

PATIENT
  Age: 53 Year
  Sex: Female

DRUGS (1)
  1. XELJANZ XR [Suspect]
     Active Substance: TOFACITINIB CITRATE
     Dosage: 11 MG, UNK

REACTIONS (7)
  - Bronchitis [Unknown]
  - Skin ulcer [Unknown]
  - Facial pain [Unknown]
  - Nasopharyngitis [Unknown]
  - Feeling of body temperature change [Unknown]
  - Sputum discoloured [Unknown]
  - Lipids increased [Unknown]
